FAERS Safety Report 9784146 (Version 1)
Quarter: 2013Q4

REPORT INFORMATION
  Report Type: Spontaneous
  Country: GB (occurrence: GB)
  Receive Date: 20131226
  Receipt Date: 20131226
  Transmission Date: 20140711
  Serious: Yes (Disabling)
  Sender: FDA-Public Use
  Company Number: GB-MYLANLABS-2013S1028197

PATIENT
  Age: 53 Year
  Sex: Female
  Weight: 114 kg

DRUGS (4)
  1. FLUOXETINE [Suspect]
     Indication: DEPRESSION
     Route: 048
     Dates: start: 20070430, end: 201205
  2. DICLOFENAC [Concomitant]
     Indication: PAIN
     Route: 048
     Dates: start: 2005, end: 2012
  3. SALBUTAMOL [Concomitant]
     Indication: ASTHMA
     Route: 055
     Dates: start: 2003
  4. SERETIDE [Concomitant]
     Indication: ASTHMA
     Route: 055
     Dates: start: 2004

REACTIONS (3)
  - Pain [Not Recovered/Not Resolved]
  - Muscle spasms [Recovered/Resolved]
  - Torticollis [Recovered/Resolved]
